FAERS Safety Report 17309295 (Version 2)
Quarter: 2020Q2

REPORT INFORMATION
  Report Type: Spontaneous
  Country: US (occurrence: US)
  Receive Date: 20200123
  Receipt Date: 20200508
  Transmission Date: 20200713
  Serious: Yes (Other)
  Sender: FDA-Public Use
  Company Number: US-TITAN PHARMACEUTICALS-2020TAN00001

PATIENT
  Age: 23 Year
  Sex: Male
  Weight: 56.69 kg

DRUGS (3)
  1. PROBUPHINE [Suspect]
     Active Substance: BUPRENORPHINE HYDROCHLORIDE
     Indication: DRUG USE DISORDER
     Dosage: 4 DOSAGE UNITS, ONCE (RIGHT ARM)
     Dates: start: 201903
  2. PROBUPHINE [Suspect]
     Active Substance: BUPRENORPHINE HYDROCHLORIDE
     Dosage: 4 DOSAGE UNITS, ONCE
     Dates: start: 20200427
  3. PROBUPHINE [Suspect]
     Active Substance: BUPRENORPHINE HYDROCHLORIDE
     Dosage: 4 DOSAGE UNITS, ONCE (LEFT ARM)
     Dates: start: 20191003

REACTIONS (8)
  - Hypotension [Recovered/Resolved]
  - Prescribed overdose [Recovered/Resolved]
  - Device use error [Recovered/Resolved]
  - Weight decreased [Recovering/Resolving]
  - Heart rate decreased [Recovered/Resolved]
  - Loss of consciousness [Recovered/Resolved]
  - Autoimmune thyroiditis [Not Recovered/Not Resolved]
  - Product use issue [Recovered/Resolved]

NARRATIVE: CASE EVENT DATE: 20191003
